FAERS Safety Report 23932618 (Version 1)
Quarter: 2024Q2

REPORT INFORMATION
  Report Type: Spontaneous
  Country: JP (occurrence: JP)
  Receive Date: 20240603
  Receipt Date: 20240603
  Transmission Date: 20240716
  Serious: Yes (Other)
  Sender: FDA-Public Use
  Company Number: JP-Merck Healthcare KGaA-2024029127

PATIENT
  Sex: Male
  Weight: 89 kg

DRUGS (1)
  1. METFORMIN HYDROCHLORIDE [Suspect]
     Active Substance: METFORMIN HYDROCHLORIDE
     Indication: Product used for unknown indication

REACTIONS (5)
  - Diabetic coma [Recovering/Resolving]
  - Weight decreased [Unknown]
  - Fat tissue decreased [Unknown]
  - Blood glucose increased [Unknown]
  - Treatment noncompliance [Unknown]
